FAERS Safety Report 9549579 (Version 1)
Quarter: 2013Q3

REPORT INFORMATION
  Report Type: Report from Study
  Country: US (occurrence: US)
  Receive Date: 20130924
  Receipt Date: 20130924
  Transmission Date: 20140515
  Serious: Yes (Other)
  Sender: FDA-Public Use
  Company Number: US-BAXTER-2013BAX037261

PATIENT
  Age: 14 Year
  Sex: Male

DRUGS (4)
  1. CYCLOPHOSPHAMIDE FOR INJECTION, USP [Suspect]
     Indication: GERM CELL CANCER
     Dosage: 1.8 G/M2
     Route: 065
  2. CISPLATIN [Suspect]
     Indication: GERM CELL CANCER
     Route: 065
  3. ETOPOSIDE [Suspect]
     Indication: GERM CELL CANCER
     Route: 065
  4. BLEOMYCIN [Suspect]
     Indication: GERM CELL CANCER
     Route: 065

REACTIONS (1)
  - Malignant neoplasm progression [Unknown]
